FAERS Safety Report 7342432-8 (Version None)
Quarter: 2011Q1

REPORT INFORMATION
  Report Type: 
  Country: None (occurrence: None)
  Receive Date: 20110310
  Receipt Date: 20110224
  Transmission Date: 20110831
  Serious: Yes (Hospitalization, Other)
  Sender: FDA-Public Use
  Company Number: DE-RANBAXY-2010RR-40365

PATIENT
  Age: 39 Year
  Sex: Female

DRUGS (3)
  1. AMITRIPTYLINE HCL [Suspect]
     Dosage: 50 MG, UNK
  2. PAXIL [Suspect]
     Dosage: 10 MG, UNK
  3. ZOLPIDEM [Concomitant]
     Dosage: 10 MG, UNK

REACTIONS (3)
  - HALLUCINATION, AUDITORY [None]
  - DRUG INTERACTION [None]
  - PSYCHOTIC DISORDER [None]
